FAERS Safety Report 7719524-4 (Version None)
Quarter: 2011Q3

REPORT INFORMATION
  Report Type: 
  Country: None (occurrence: None)
  Receive Date: 20110830
  Receipt Date: 20110823
  Transmission Date: 20111222
  Serious: Yes (Other)
  Sender: FDA-Public Use
  Company Number: PHHY2011JP75622

PATIENT
  Age: 63 Year
  Sex: Female

DRUGS (2)
  1. RIFAMPICIN [Suspect]
     Dosage: UNK
     Route: 048
     Dates: start: 20101201, end: 20110101
  2. ETHAMBUTOL HYDROCHLORIDE [Suspect]
     Dosage: UNK
     Route: 048
     Dates: start: 20101201, end: 20110101

REACTIONS (1)
  - DRUG ERUPTION [None]
